FAERS Safety Report 10578375 (Version 7)
Quarter: 2016Q2

REPORT INFORMATION
  Report Type: Report from Study
  Country: EC (occurrence: EC)
  Receive Date: 20141112
  Receipt Date: 20160401
  Transmission Date: 20160815
  Serious: Yes (Other)
  Sender: FDA-Public Use
  Company Number: PHHY2014EC139268

PATIENT
  Age: 62 Year
  Sex: Male

DRUGS (6)
  1. SANDOSTATIN LAR DEPOT [Suspect]
     Active Substance: OCTREOTIDE ACETATE
     Dosage: 40 MG, 36 DAYS
     Route: 030
     Dates: start: 20160127
  2. SANDOSTATIN LAR DEPOT [Suspect]
     Active Substance: OCTREOTIDE ACETATE
     Indication: ACROMEGALY
     Dosage: 20 MG, QMO, ONCE A MONTH
     Route: 030
     Dates: start: 20141022, end: 20150617
  3. SANDOSTATIN LAR DEPOT [Suspect]
     Active Substance: OCTREOTIDE ACETATE
     Dosage: 40 MG, QMO, ONCE A MONTH
     Route: 030
     Dates: start: 20150618
  4. GLICIVIN [Concomitant]
     Indication: PRODUCT USED FOR UNKNOWN INDICATION
     Route: 065
  5. LOSARTAN. [Concomitant]
     Active Substance: LOSARTAN
     Indication: PRODUCT USED FOR UNKNOWN INDICATION
     Route: 065
  6. SANDOSTATIN LAR DEPOT [Suspect]
     Active Substance: OCTREOTIDE ACETATE
     Dosage: 40 MG, 37 DAYS
     Route: 030
     Dates: start: 20151023

REACTIONS (7)
  - Loss of consciousness [Unknown]
  - Amnesia [Unknown]
  - Inappropriate schedule of drug administration [Unknown]
  - Hypoaesthesia [Unknown]
  - Dyspnoea [Not Recovered/Not Resolved]
  - Seizure [Not Recovered/Not Resolved]
  - Cough [Recovered/Resolved]

NARRATIVE: CASE EVENT DATE: 201410
